FAERS Safety Report 15540094 (Version 2)
Quarter: 2018Q4

REPORT INFORMATION
  Report Type: Spontaneous
  Country: US (occurrence: US)
  Receive Date: 20181023
  Receipt Date: 20181116
  Transmission Date: 20190205
  Serious: No
  Sender: FDA-Public Use
  Company Number: US-ASTRAZENECA-2018SF27929

PATIENT
  Age: 21567 Day
  Sex: Female
  Weight: 80.3 kg

DRUGS (3)
  1. BYDUREON [Suspect]
     Active Substance: EXENATIDE
     Indication: TYPE 2 DIABETES MELLITUS
     Route: 058
     Dates: start: 20180930
  2. METFORMIN [Concomitant]
     Active Substance: METFORMIN HYDROCHLORIDE
     Indication: DIABETES MELLITUS
     Route: 048
  3. GLIPIZIDE. [Concomitant]
     Active Substance: GLIPIZIDE
     Indication: DIABETES MELLITUS
     Route: 048
     Dates: start: 2015

REACTIONS (12)
  - Depression [Unknown]
  - Dyspepsia [Unknown]
  - Injection site pruritus [Unknown]
  - Rash [Unknown]
  - Feeling abnormal [Unknown]
  - Device malfunction [Unknown]
  - Injection site pain [Unknown]
  - Abdominal distension [Unknown]
  - Wrong technique in device usage process [Recovered/Resolved]
  - Oral discomfort [Unknown]
  - Injection site extravasation [Unknown]
  - Nausea [Unknown]

NARRATIVE: CASE EVENT DATE: 20180930
